FAERS Safety Report 9232977 (Version 2)
Quarter: 2013Q2

REPORT INFORMATION
  Report Type: Spontaneous
  Country: US (occurrence: None)
  Receive Date: 20121031
  Receipt Date: 20130107
  Transmission Date: 20140414
  Serious: Yes (Other)
  Sender: FDA-Public Use
  Company Number: PHEH2012US014043

PATIENT
  Age: 32 Year
  Sex: Male

DRUGS (5)
  1. GILENYA [Suspect]
     Indication: MULTIPLE SCLEROSIS
     Route: 048
     Dates: start: 20120410, end: 20120521
  2. SYNTHROID (LEVOTHYROXINE SODIUM) [Concomitant]
  3. ALPRAZOLAM (ALPRAZOLAM) [Concomitant]
  4. AMBIEN [Concomitant]
  5. NUVIGIL (ARMODAFINIL) [Concomitant]

REACTIONS (3)
  - Dyspnoea [None]
  - Hypoaesthesia [None]
  - Overdose [None]
